FAERS Safety Report 22671837 (Version 5)
Quarter: 2024Q3

REPORT INFORMATION
  Report Type: Report from Study
  Country: CN (occurrence: CN)
  Receive Date: 20230705
  Receipt Date: 20240909
  Transmission Date: 20241017
  Serious: Yes (Hospitalization, Other)
  Sender: TAKEDA
  Company Number: CN-TAKEDA-2022TUS098609

PATIENT
  Age: 49 Year
  Sex: Male
  Weight: 68 kg

DRUGS (2)
  1. VEDOLIZUMAB [Suspect]
     Active Substance: VEDOLIZUMAB
     Indication: Crohn^s disease
     Dosage: 300 MILLIGRAM
     Route: 042
     Dates: start: 20221201
  2. BIFID TRIPLE VIABLE [Concomitant]
     Indication: Inflammatory bowel disease
     Dosage: UNK UNK, BID
     Route: 048
     Dates: start: 20221202

REACTIONS (4)
  - Intestinal obstruction [Not Recovered/Not Resolved]
  - Conduction disorder [Unknown]
  - Off label use [Unknown]
  - Abdominal distension [Not Recovered/Not Resolved]

NARRATIVE: CASE EVENT DATE: 20230319
